FAERS Safety Report 5514383-2 (Version None)
Quarter: 2007Q4

REPORT INFORMATION
  Report Type: 
  Country: None (occurrence: None)
  Receive Date: 20071113
  Receipt Date: 20070503
  Transmission Date: 20080405
  Serious: No
  Sender: FDA-Public Use
  Company Number: A0649861A

PATIENT
  Age: 82 Year
  Sex: Male

DRUGS (7)
  1. COREG [Suspect]
     Indication: DRUG USE FOR UNKNOWN INDICATION
     Dosage: 12.5MG TWICE PER DAY
     Route: 048
     Dates: start: 20061110
  2. LIPITOR [Concomitant]
  3. ASPIRIN [Concomitant]
  4. PLAVIX [Concomitant]
  5. METFORMIN HCL [Concomitant]
  6. GLYBURIDE [Concomitant]
  7. STOOL SOFTENER [Concomitant]

REACTIONS (9)
  - BALANCE DISORDER [None]
  - DIZZINESS [None]
  - DRUG INEFFECTIVE [None]
  - DRY EYE [None]
  - ERYTHEMA [None]
  - FALL [None]
  - FATIGUE [None]
  - MUSCULOSKELETAL CHEST PAIN [None]
  - SKIN EXFOLIATION [None]
